FAERS Safety Report 11789850 (Version 1)
Quarter: 2015Q4

REPORT INFORMATION
  Report Type: Report from Study
  Country: CO (occurrence: CO)
  Receive Date: 20151201
  Receipt Date: 20151201
  Transmission Date: 20160305
  Serious: Yes (Hospitalization)
  Sender: FDA-Public Use
  Company Number: PHHY2015CO156658

PATIENT
  Age: 90 Year
  Sex: Female

DRUGS (2)
  1. SANDOSTATIN LAR DEPOT [Suspect]
     Active Substance: OCTREOTIDE ACETATE
     Indication: ACROMEGALY
  2. SANDOSTATIN LAR DEPOT [Suspect]
     Active Substance: OCTREOTIDE ACETATE
     Indication: NEUROENDOCRINE TUMOUR
     Dosage: 20 MG, QD
     Route: 030
     Dates: start: 20150211

REACTIONS (3)
  - Dyspnoea [Unknown]
  - Inappropriate schedule of drug administration [Unknown]
  - Chest pain [Unknown]

NARRATIVE: CASE EVENT DATE: 20150211
